FAERS Safety Report 23419291 (Version 4)
Quarter: 2024Q4

REPORT INFORMATION
  Report Type: Report from Study
  Country: CO (occurrence: CO)
  Receive Date: 20240118
  Receipt Date: 20241118
  Transmission Date: 20250115
  Serious: Yes (Hospitalization)
  Sender: BIOGEN
  Company Number: CO-BIOGEN-2024BI01245486

PATIENT
  Age: 18 Month
  Sex: Male
  Weight: 9.3 kg

DRUGS (2)
  1. SPINRAZA [Suspect]
     Active Substance: NUSINERSEN
     Indication: Spinal muscular atrophy
     Route: 050
  2. SALBUTAMOL SYRUP [Concomitant]
     Indication: Spinal muscular atrophy
     Route: 050
     Dates: start: 20221005

REACTIONS (5)
  - Gastroenteritis viral [Recovered/Resolved]
  - Immunisation reaction [Unknown]
  - Haematochezia [Recovered/Resolved]
  - Constipation [Recovered/Resolved]
  - Vomiting [Recovered/Resolved]

NARRATIVE: CASE EVENT DATE: 20240108
